FAERS Safety Report 4835588-X (Version None)
Quarter: 2005Q4

REPORT INFORMATION
  Report Type: 
  Country: None (occurrence: None)
  Receive Date: 20051121
  Receipt Date: 20051108
  Transmission Date: 20060501
  Serious: Yes (Hospitalization)
  Sender: FDA-Public Use
  Company Number: 2005BI016737

PATIENT
  Age: 52 Year
  Sex: Female

DRUGS (12)
  1. AVONEX [Suspect]
     Indication: MULTIPLE SCLEROSIS
     Dosage: 30 UG QW IM
     Route: 030
     Dates: start: 20010603, end: 20040101
  2. AVONEX [Suspect]
     Indication: MULTIPLE SCLEROSIS
     Dosage: 30 UG IM
     Route: 030
     Dates: start: 20040101, end: 20040101
  3. DIOVAN [Concomitant]
  4. PRILOSEC [Concomitant]
  5. PREMPRO [Concomitant]
  6. DARVON [Concomitant]
  7. NEURONTIN [Concomitant]
  8. ASPIRIN [Concomitant]
  9. AVONEX [Suspect]
     Indication: MULTIPLE SCLEROSIS
     Dosage: IM
     Route: 030
     Dates: start: 20040101
  10. ASCORBIC ACID [Concomitant]
  11. VITAMIN E [Concomitant]
  12. REGLAN [Concomitant]

REACTIONS (1)
  - VENOUS THROMBOSIS [None]
